FAERS Safety Report 4870519-8 (Version None)
Quarter: 2005Q4

REPORT INFORMATION
  Report Type: 
  Country: None (occurrence: None)
  Receive Date: 20051228
  Receipt Date: 20051215
  Transmission Date: 20060501
  Serious: Yes (Other)
  Sender: FDA-Public Use
  Company Number: 2005-135142-NL

PATIENT
  Age: 24 Year
  Sex: Female
  Weight: 86.2 kg

DRUGS (1)
  1. NUVARING [Suspect]
     Indication: CONTRACEPTION
     Dosage: VAGINAL
     Dates: start: 20051114, end: 20051126

REACTIONS (4)
  - ANXIETY [None]
  - DEPRESSION [None]
  - IRRITABILITY [None]
  - TACHYCARDIA [None]
